FAERS Safety Report 24809362 (Version 1)
Quarter: 2025Q1

REPORT INFORMATION
  Report Type: Report from Study
  Country: US (occurrence: US)
  Receive Date: 20250106
  Receipt Date: 20250106
  Transmission Date: 20250408
  Serious: Yes (Other)
  Sender: ALEXION PHARMACEUTICALS
  Company Number: US-AstraZeneca-CH-00776505A

PATIENT
  Age: 70 Year

DRUGS (4)
  1. CAPIVASERTIB [Suspect]
     Active Substance: CAPIVASERTIB
     Indication: Breast cancer female
     Dosage: 400 MILLIGRAM, BID
  2. CAPIVASERTIB [Suspect]
     Active Substance: CAPIVASERTIB
     Dosage: 400 MILLIGRAM, BID
     Route: 048
  3. CAPIVASERTIB [Suspect]
     Active Substance: CAPIVASERTIB
     Dosage: 400 MILLIGRAM, BID
  4. CAPIVASERTIB [Suspect]
     Active Substance: CAPIVASERTIB
     Dosage: 400 MILLIGRAM, BID
     Route: 048

REACTIONS (11)
  - Syncope [Unknown]
  - Asthenia [Unknown]
  - Dry skin [Unknown]
  - Pigmentation disorder [Unknown]
  - Blood glucose [Unknown]
  - Nervousness [Unknown]
  - Heart rate increased [Unknown]
  - Nasopharyngitis [Unknown]
  - Anxiety [Unknown]
  - Hypersensitivity [Unknown]
  - Decreased appetite [Unknown]
